FAERS Safety Report 14080766 (Version 2)
Quarter: 2017Q4

REPORT INFORMATION
  Report Type: Spontaneous
  Country: FR (occurrence: FR)
  Receive Date: 20171012
  Receipt Date: 20171031
  Transmission Date: 20180321
  Serious: Yes (Disabling)
  Sender: FDA-Public Use
  Company Number: FR-MERCK KGAA-2029837

PATIENT
  Age: 82 Year
  Sex: Female

DRUGS (3)
  1. BISOCE [Concomitant]
     Active Substance: BISOPROLOL
  2. NOVOTHYROX [Suspect]
     Active Substance: LEVOTHYROXINE SODIUM
     Indication: AUTOIMMUNE THYROIDITIS
     Dates: start: 20170701
  3. COVERSYL [Concomitant]
     Active Substance: PERINDOPRIL

REACTIONS (10)
  - Neuralgia [Recovering/Resolving]
  - Vertigo [Not Recovered/Not Resolved]
  - Headache [Not Recovered/Not Resolved]
  - Face injury [None]
  - Malaise [Not Recovered/Not Resolved]
  - Fatigue [Not Recovered/Not Resolved]
  - Swelling [Recovering/Resolving]
  - Musculoskeletal stiffness [Recovering/Resolving]
  - Nerve compression [None]
  - Pain [Recovering/Resolving]

NARRATIVE: CASE EVENT DATE: 2017
